FAERS Safety Report 25526020 (Version 3)
Quarter: 2025Q3

REPORT INFORMATION
  Report Type: Spontaneous
  Country: US (occurrence: US)
  Receive Date: 20250707
  Receipt Date: 20250903
  Transmission Date: 20251020
  Serious: No
  Sender: PFIZER
  Company Number: US-PFIZER INC-PV202500080192

PATIENT
  Age: 56 Year
  Sex: Female

DRUGS (4)
  1. SOLU-MEDROL [Suspect]
     Active Substance: METHYLPREDNISOLONE SODIUM SUCCINATE
     Dates: start: 20250609
  2. OCREVUS [Suspect]
     Active Substance: OCRELIZUMAB
  3. NOVOLOG [Concomitant]
     Active Substance: INSULIN ASPART
  4. TOUJEO [Concomitant]
     Active Substance: INSULIN GLARGINE

REACTIONS (2)
  - Headache [Unknown]
  - Blood glucose increased [Unknown]
